FAERS Safety Report 14625516 (Version 1)
Quarter: 2018Q1

REPORT INFORMATION
  Report Type: Spontaneous
  Country: US (occurrence: US)
  Receive Date: 20180312
  Receipt Date: 20180312
  Transmission Date: 20180509
  Serious: No
  Sender: FDA-Public Use
  Company Number: US-ALLERGAN-1721604US

PATIENT
  Age: 63 Year
  Sex: Female
  Weight: 59.86 kg

DRUGS (3)
  1. LISINOPRIL. [Concomitant]
     Active Substance: LISINOPRIL
     Indication: HYPERTENSION
     Route: 065
  2. SIMVASTATIN. [Concomitant]
     Active Substance: SIMVASTATIN
     Indication: BLOOD CHOLESTEROL INCREASED
  3. OXYTROL [Suspect]
     Active Substance: OXYBUTYNIN
     Indication: HYPERTONIC BLADDER
     Dosage: 1 UNK, UNK
     Route: 062
     Dates: start: 20170517, end: 20170518

REACTIONS (2)
  - Application site pruritus [Unknown]
  - Application site erythema [Unknown]

NARRATIVE: CASE EVENT DATE: 20170518
